FAERS Safety Report 9268494 (Version 1)
Quarter: 2013Q2

REPORT INFORMATION
  Report Type: Spontaneous
  Country: US (occurrence: US)
  Receive Date: 20130502
  Receipt Date: 20130502
  Transmission Date: 20140414
  Serious: No
  Sender: FDA-Public Use
  Company Number: US-ALEXION-A201202366

PATIENT
  Age: 8 Month
  Sex: Female

DRUGS (2)
  1. SOLIRIS 300MG [Suspect]
     Indication: HAEMOLYTIC URAEMIC SYNDROME
     Dosage: 3 TREATMENTS WEEKLY
     Route: 042
  2. SOLIRIS 300MG [Suspect]
     Dosage: UNK, Q3W
     Route: 042

REACTIONS (5)
  - Platelet count decreased [Unknown]
  - Malaise [Unknown]
  - Blood creatinine increased [Unknown]
  - Haemoglobin decreased [Unknown]
  - Haematuria [Unknown]
